FAERS Safety Report 20876358 (Version 1)
Quarter: 2022Q2

REPORT INFORMATION
  Report Type: Other
  Country: US (occurrence: None)
  Receive Date: 20220526
  Receipt Date: 20220526
  Transmission Date: 20220721
  Serious: Yes (Other)
  Sender: FDA-Public Use
  Company Number: US-ROCHE-3102442

PATIENT
  Sex: Male

DRUGS (1)
  1. OCREVUS [Suspect]
     Active Substance: OCRELIZUMAB
     Indication: Multiple sclerosis
     Dosage: 600 MG EVERY 6 MONTH, DATE OF TREATMENT WAS: 12/OCT/2021, 28/SEP/2021
     Route: 042
     Dates: start: 20210928

REACTIONS (1)
  - Clostridium difficile infection [Unknown]
